FAERS Safety Report 5389196-5 (Version None)
Quarter: 2007Q3

REPORT INFORMATION
  Report Type: 
  Country: None (occurrence: None)
  Receive Date: 20070717
  Receipt Date: 20070706
  Transmission Date: 20080115
  Serious: Yes (Hospitalization)
  Sender: FDA-Public Use
  Company Number: US-BAYER-200712025BWH

PATIENT
  Age: 68 Year
  Sex: Male

DRUGS (8)
  1. NEXAVAR [Suspect]
     Indication: MALIGNANT MELANOMA
     Dosage: TOTAL DAILY DOSE: 800 MG  UNIT DOSE: 200 MG
     Route: 048
     Dates: start: 20070510, end: 20070627
  2. TAXOL [Suspect]
     Indication: MALIGNANT MELANOMA
     Dosage: TOTAL DAILY DOSE: 400 MG
     Route: 042
     Dates: start: 20070510
  3. CARBOPLATIN [Suspect]
     Indication: MALIGNANT MELANOMA
     Dosage: TOTAL DAILY DOSE: 694 MG
     Dates: start: 20070510
  4. NIACIN [Concomitant]
  5. MULTI-VITAMIN [Concomitant]
  6. HYDROMORPHONE HCL [Concomitant]
  7. DECADRON [Concomitant]
  8. COMPAZINE [Concomitant]

REACTIONS (2)
  - PLEURAL EFFUSION [None]
  - PULMONARY EMBOLISM [None]
